FAERS Safety Report 9702047 (Version 1)
Quarter: 2013Q4

REPORT INFORMATION
  Report Type: Spontaneous
  Country: US (occurrence: None)
  Receive Date: 20131120
  Receipt Date: 20131120
  Transmission Date: 20140711
  Serious: Yes (Other)
  Sender: FDA-Public Use
  Company Number: None

PATIENT
  Age: 44 None
  Sex: Female
  Weight: 73.48 kg

DRUGS (19)
  1. BUTRANS [Suspect]
     Indication: PAIN
     Dosage: 10 MCG PER HOUR 4 PATCHES WEEKLY ON SKIN. CHANGE EVERY SEVEN DAYS
     Dates: start: 20131104, end: 20131116
  2. FUROSEMIDE [Concomitant]
  3. SPIRONOLACTONE [Concomitant]
  4. TRAMADOL ER [Concomitant]
  5. METHOCARBAMOL [Concomitant]
  6. LISINOPRIL [Concomitant]
  7. ETODOLAC [Concomitant]
  8. JANUMET [Concomitant]
  9. BACLOFEN [Concomitant]
  10. CARVEDILOL [Concomitant]
  11. PRAVASTATIN [Concomitant]
  12. OMEPRAZOLE [Concomitant]
  13. GABAPENTIN [Concomitant]
  14. HYOSCAMINE [Concomitant]
  15. HYDROCODONE-APAP [Concomitant]
  16. KROGER BRAND MULTI-VITAMIN [Concomitant]
  17. ANACIN [Concomitant]
  18. ALEVE [Concomitant]
  19. VICODIN [Concomitant]

REACTIONS (5)
  - Application site burn [None]
  - Pruritus [None]
  - Application site discolouration [None]
  - Dry skin [None]
  - Application site reaction [None]
